FAERS Safety Report 8822606 (Version 4)
Quarter: 2013Q1

REPORT INFORMATION
  Report Type: Report from Study
  Country: US (occurrence: US)
  Receive Date: 20121003
  Receipt Date: 20130114
  Transmission Date: 20140127
  Serious: Yes (Hospitalization)
  Sender: FDA-Public Use
  Company Number: US-ACTELION-A-US2012-71970

PATIENT
  Age: 50 Year
  Sex: Female

DRUGS (3)
  1. TRACLEER [Suspect]
     Indication: PULMONARY ARTERIAL HYPERTENSION
     Dosage: 62.5 MG, BID
     Route: 048
     Dates: start: 20120620, end: 201207
  2. TRACLEER [Suspect]
     Dosage: 125 MG, BID
     Route: 048
     Dates: start: 201207, end: 20120922
  3. REMODULIN [Concomitant]

REACTIONS (2)
  - Liver transplant rejection [Recovered/Resolved]
  - Liver function test abnormal [Recovered/Resolved]
